FAERS Safety Report 8264919-6 (Version None)
Quarter: 2012Q2

REPORT INFORMATION
  Report Type: 
  Country: None (occurrence: None)
  Receive Date: 20120406
  Receipt Date: 20120402
  Transmission Date: 20120825
  Serious: Yes (Other)
  Sender: FDA-Public Use
  Company Number: US-JNJFOC-20120308808

PATIENT
  Sex: Female
  Weight: 65.77 kg

DRUGS (13)
  1. OMEPRAZOLE [Concomitant]
     Indication: BARRETT'S OESOPHAGUS
     Route: 065
  2. NEURONTIN [Suspect]
     Route: 065
  3. NEURONTIN [Suspect]
     Route: 065
  4. ULTRAM [Suspect]
     Indication: PAIN
     Route: 065
  5. NEURONTIN [Suspect]
     Route: 065
  6. PREMARIN [Suspect]
     Indication: VULVOVAGINAL BURNING SENSATION
     Route: 065
  7. TEMAZEPAM [Concomitant]
     Indication: PAIN
     Route: 065
  8. TRAZODONE HCL [Concomitant]
     Indication: PAIN
     Route: 065
  9. NEURONTIN [Suspect]
     Indication: OSTEOPOROSIS
     Route: 065
  10. PLAQUENIL [Suspect]
     Indication: PAIN
     Route: 065
     Dates: start: 20120101
  11. NEURONTIN [Suspect]
     Indication: FIBROMYALGIA
     Route: 065
  12. NEURONTIN [Suspect]
     Indication: RHEUMATOID ARTHRITIS
     Route: 065
  13. PREMARIN [Suspect]
     Indication: VULVOVAGINAL DRYNESS
     Route: 065

REACTIONS (2)
  - ACTIVITIES OF DAILY LIVING IMPAIRED [None]
  - DRUG INEFFECTIVE [None]
